FAERS Safety Report 9201967 (Version 2)
Quarter: 2013Q4

REPORT INFORMATION
  Report Type: Spontaneous
  Country: US (occurrence: US)
  Receive Date: 20130401
  Receipt Date: 20131127
  Transmission Date: 20140711
  Serious: Yes (Other)
  Sender: FDA-Public Use
  Company Number: US-BAYER-2013-038389

PATIENT
  Age: 21 Year
  Sex: Female

DRUGS (10)
  1. YAZ [Suspect]
     Dosage: UNK
  2. YASMIN [Suspect]
     Dosage: UNK
  3. OCELLA [Suspect]
     Dosage: UNK
  4. HYDROCODONE [Concomitant]
     Dosage: UNK
  5. ZOLOFT [Concomitant]
     Dosage: UNK
  6. ASPIRIN [Concomitant]
     Dosage: UNK
  7. ATIVAN [Concomitant]
     Dosage: UNK
  8. RESTORIL [Concomitant]
     Dosage: UNK
  9. PROTONIX [Concomitant]
     Dosage: UNK
  10. VICODIN [Concomitant]
     Dosage: UNK

REACTIONS (6)
  - Gallbladder injury [None]
  - Injury [None]
  - Pain [None]
  - Pain [None]
  - Cholecystitis [None]
  - Biliary dyskinesia [None]
